FAERS Safety Report 10081345 (Version 2)
Quarter: 2014Q2

REPORT INFORMATION
  Report Type: Report from Study
  Country: IE (occurrence: IE)
  Receive Date: 20140416
  Receipt Date: 20140416
  Transmission Date: 20141212
  Serious: Yes (Hospitalization)
  Sender: FDA-Public Use
  Company Number: IE-JNJFOC-20140200534

PATIENT
  Age: 56 Year
  Sex: Male

DRUGS (10)
  1. IBRUTINIB [Suspect]
     Indication: LYMPHOCYTIC LYMPHOMA
     Route: 048
     Dates: start: 20140106
  2. IBRUTINIB [Suspect]
     Indication: LYMPHOCYTIC LYMPHOMA
     Route: 048
     Dates: start: 20140214
  3. IBRUTINIB [Suspect]
     Indication: CHRONIC LYMPHOCYTIC LEUKAEMIA
     Route: 048
     Dates: start: 20140106
  4. IBRUTINIB [Suspect]
     Indication: CHRONIC LYMPHOCYTIC LEUKAEMIA
     Route: 048
     Dates: start: 20140214
  5. VORICONAZOLE [Concomitant]
     Route: 048
  6. ALLOPURINOL [Concomitant]
     Indication: BLOOD URIC ACID INCREASED
     Route: 048
  7. NEUPOGEN [Concomitant]
     Indication: NEUTROPHIL COUNT DECREASED
     Dosage: MONDAY + THURSDAY
     Route: 058
  8. VALACICLOVIR [Concomitant]
     Route: 048
  9. SEPARIN T [Concomitant]
     Dosage: MONDAY, WEDNESDAY + FRIDAY
     Route: 048
  10. DERMOVATE [Concomitant]
     Indication: DRY SKIN
     Route: 061

REACTIONS (1)
  - Purpura [Recovered/Resolved]
